FAERS Safety Report 5083590-8 (Version None)
Quarter: 2006Q3

REPORT INFORMATION
  Report Type: 
  Country: None (occurrence: None)
  Receive Date: 20060818
  Receipt Date: 20060710
  Transmission Date: 20061208
  Serious: Yes (Hospitalization, Other)
  Sender: FDA-Public Use
  Company Number: FR-GLAXOSMITHKLINE-B0430590A

PATIENT
  Age: 7 Month
  Sex: Male
  Weight: 8 kg

DRUGS (1)
  1. LAMICTAL [Suspect]
     Dosage: 240MG CUMULATIVE DOSE
     Route: 048
     Dates: start: 20060709, end: 20060710

REACTIONS (9)
  - ACCIDENTAL OVERDOSE [None]
  - HYPOTONIA [None]
  - MALAISE [None]
  - MEDICATION ERROR [None]
  - NAUSEA [None]
  - PALLOR [None]
  - SOMNOLENCE [None]
  - TREMOR [None]
  - VOMITING [None]
